FAERS Safety Report 10446411 (Version 4)
Quarter: 2014Q3

REPORT INFORMATION
  Report Type: Spontaneous
  Country: KR (occurrence: KR)
  Receive Date: 20140911
  Receipt Date: 20140925
  Transmission Date: 20150326
  Serious: Yes (Hospitalization)
  Sender: FDA-Public Use
  Company Number: KR-009507513-1409KOR000531

PATIENT
  Age: 62 Year
  Sex: Male
  Weight: 83 kg

DRUGS (23)
  1. GASTER [Concomitant]
     Active Substance: FAMOTIDINE
     Dosage: 20 MG, FREQUENCY 2
     Route: 042
     Dates: start: 20140630, end: 20140630
  2. COZAAR [Concomitant]
     Active Substance: LOSARTAN POTASSIUM
     Indication: BLOOD PRESSURE DECREASED
     Dosage: 50 MG, FREQUENCY 1
     Route: 048
     Dates: start: 20140623, end: 20140707
  3. BRIDION [Suspect]
     Active Substance: SUGAMMADEX
     Indication: NEUROMUSCULAR BLOCKADE REVERSAL
     Dosage: 166 MG, ONCE
     Route: 042
     Dates: start: 20140630, end: 20140630
  4. ROCURONIUM BROMIDE. [Suspect]
     Active Substance: ROCURONIUM BROMIDE
     Indication: GENERAL ANAESTHESIA
     Dosage: 50 MG, FREQ 1
     Route: 042
     Dates: start: 20140630
  5. GASTER [Concomitant]
     Active Substance: FAMOTIDINE
     Indication: PROPHYLAXIS
     Dosage: 20 MG, FREQUENCY 1
     Route: 042
     Dates: start: 20140625, end: 20140629
  6. FUTHAN [Concomitant]
     Active Substance: NAFAMOSTAT MESYLATE
     Indication: HAEMORRHAGE PROPHYLAXIS
     Dosage: 20 MG, FREQUENCY 1
     Route: 042
     Dates: start: 20140627, end: 20140629
  7. MEPERIDINE HYDROCHLORIDE. [Concomitant]
     Active Substance: MEPERIDINE HYDROCHLORIDE
     Indication: ANALGESIC THERAPY
     Dosage: 25 MG, FREQUENCY 1
     Route: 042
     Dates: start: 20140630, end: 20140630
  8. MEPERIDINE HYDROCHLORIDE. [Concomitant]
     Active Substance: MEPERIDINE HYDROCHLORIDE
     Indication: PAIN PROPHYLAXIS
  9. MUCOPECT [Concomitant]
     Indication: PRODUCTIVE COUGH
     Dosage: 15 MG, FREQUENCY 4
     Route: 042
     Dates: start: 20140630, end: 20140630
  10. MUCOPECT [Concomitant]
     Indication: PROPHYLAXIS
  11. TRASPHEN SEMI [Concomitant]
     Indication: ANALGESIC THERAPY
     Dosage: 362.5 MG, FREQUENCY 3
     Route: 048
     Dates: start: 20140702, end: 20140702
  12. CEFTRIAXONE SODIUM. [Concomitant]
     Active Substance: CEFTRIAXONE SODIUM
     Indication: INFECTION PROPHYLAXIS
     Dosage: 2 G, UNK
     Route: 042
     Dates: start: 20140626, end: 20140630
  13. PERDIPINE [Concomitant]
     Active Substance: NICARDIPINE HYDROCHLORIDE
     Indication: BLOOD PRESSURE DECREASED
     Dosage: 1 MG, FREQUENCY 2
     Route: 042
     Dates: start: 20140626, end: 20140626
  14. AMARYL [Concomitant]
     Active Substance: GLIMEPIRIDE
     Dosage: 2 MG, FREQUENCY 1
     Route: 048
     Dates: start: 20140701, end: 20140707
  15. CEFTRIAXONE SODIUM. [Concomitant]
     Active Substance: CEFTRIAXONE SODIUM
     Dosage: 2 G, FREQUENCY 3
     Route: 042
     Dates: start: 20140703, end: 20140704
  16. TRIDOL (TRAMADOL HYDROCHLORIDE) [Concomitant]
     Indication: ANALGESIC THERAPY
     Dosage: 100 MG, FREQUENCY 1
     Route: 042
     Dates: start: 20140627, end: 20140627
  17. AMARYL [Concomitant]
     Active Substance: GLIMEPIRIDE
     Indication: BLOOD GLUCOSE
     Dosage: 2 MG, FREQUENCY 1
     Route: 048
     Dates: start: 20140623, end: 20140629
  18. NORZYME [Concomitant]
     Indication: PROPHYLAXIS
  19. ROCURONIUM BROMIDE. [Suspect]
     Active Substance: ROCURONIUM BROMIDE
     Dosage: 10 MG, FREQ 1
     Route: 042
     Dates: start: 20140630
  20. NORZYME [Concomitant]
     Indication: DYSPEPSIA
     Dosage: 458 MG, FREQUENCY 3
     Route: 048
     Dates: start: 20140701, end: 20140707
  21. TRIDOL (TRAMADOL HYDROCHLORIDE) [Concomitant]
     Indication: PAIN PROPHYLAXIS
     Dosage: 50 MG, FREQUENCY 1
     Route: 048
     Dates: start: 20140704, end: 20140707
  22. FUTHAN [Concomitant]
     Active Substance: NAFAMOSTAT MESYLATE
     Indication: PROPHYLAXIS
  23. TRASPHEN SEMI [Concomitant]
     Indication: PAIN PROPHYLAXIS

REACTIONS (1)
  - Hepatic enzyme abnormal [Recovered/Resolved]

NARRATIVE: CASE EVENT DATE: 20140702
